FAERS Safety Report 18302259 (Version 1)
Quarter: 2020Q3

REPORT INFORMATION
  Report Type: Spontaneous
  Country: CA (occurrence: CA)
  Receive Date: 20200923
  Receipt Date: 20200923
  Transmission Date: 20201103
  Serious: Yes (Death)
  Sender: FDA-Public Use
  Company Number: CA-ACCORD-201892

PATIENT

DRUGS (5)
  1. RAPAMUNE [Suspect]
     Active Substance: SIROLIMUS
     Indication: IMMUNOSUPPRESSION
  2. TACROLIMUS. [Suspect]
     Active Substance: TACROLIMUS
     Indication: IMMUNOSUPPRESSION
  3. PREDNISONE. [Suspect]
     Active Substance: PREDNISONE
     Indication: IMMUNOSUPPRESSION
  4. MYCOPHENOLIC ACID. [Suspect]
     Active Substance: MYCOPHENOLIC ACID
     Indication: IMMUNOSUPPRESSION
  5. SIMULECT [Suspect]
     Active Substance: BASILIXIMAB
     Indication: IMMUNOSUPPRESSION
     Dosage: POWDER FOR SOLUTION INTRAVENOUS
     Route: 042

REACTIONS (2)
  - Respiratory arrest [Fatal]
  - Transplant rejection [Fatal]
